FAERS Safety Report 9414895 (Version 2)
Quarter: 2013Q3

REPORT INFORMATION
  Report Type: Spontaneous
  Country: IT (occurrence: IT)
  Receive Date: 20130723
  Receipt Date: 20130813
  Transmission Date: 20140515
  Serious: Yes (Other)
  Sender: FDA-Public Use
  Company Number: IT-TEVA-419668ISR

PATIENT
  Age: 34 Year
  Sex: Male

DRUGS (10)
  1. CISPLATIN [Suspect]
     Indication: TESTICULAR GERM CELL CANCER METASTATIC
     Dosage: 50 MG/M2 ON DAYS 1, 2, EVERY 21 DAYS
     Route: 065
  2. ETOPOSIDE [Suspect]
     Indication: TESTICULAR GERM CELL CANCER METASTATIC
     Dosage: 165 MG/M2, DAYS 1-3, EVERY 21 DAYS
     Route: 065
  3. ETOPOSIDE [Suspect]
     Dosage: 100 MG/M2, DAYS 1-3
     Route: 065
  4. ETOPOSIDE [Suspect]
     Dosage: 300 MG/M2, DAYS 1-5
     Route: 065
  5. CARBOPLATIN [Suspect]
     Indication: TESTICULAR GERM CELL CANCER METASTATIC
     Dosage: 250 MG/M2, DAY 2
     Route: 065
  6. CARBOPLATIN [Suspect]
     Dosage: 250 MG/M2, DAYS 1-5
     Route: 065
  7. PACLITAXEL [Suspect]
     Indication: TESTICULAR GERM CELL CANCER METASTATIC
     Dosage: 175 MG/M2, DAY 1
     Route: 065
  8. IFOSFAMIDE [Suspect]
     Indication: TESTICULAR GERM CELL CANCER METASTATIC
     Dosage: 5000 MG/M2 FOR 24H CONTINUOUS INFUSION, DAY 2
     Route: 065
  9. IFOSFAMIDE [Suspect]
     Dosage: 1500 MG/M2, DAYS 1-5
     Route: 065
  10. LENOGRASTIM [Concomitant]
     Indication: PROPHYLAXIS
     Dosage: 150 MCG, 1FL FROM DAYS 5 TO 10
     Route: 058

REACTIONS (8)
  - Neutropenia [Recovering/Resolving]
  - Thrombocytopenia [Recovering/Resolving]
  - Febrile neutropenia [Recovering/Resolving]
  - Haematotoxicity [Unknown]
  - Gastrointestinal toxicity [Unknown]
  - Mucosal inflammation [Unknown]
  - Vomiting [Unknown]
  - Nausea [Unknown]
